FAERS Safety Report 16803420 (Version 4)
Quarter: 2020Q3

REPORT INFORMATION
  Report Type: Report from Study
  Country: GB (occurrence: GB)
  Receive Date: 20190913
  Receipt Date: 20200706
  Transmission Date: 20201102
  Serious: Yes (Life-Threatening, Hospitalization, Other)
  Sender: FDA-Public Use
  Company Number: GB-ROCHE-2402971

PATIENT
  Age: 64 Year
  Sex: Female
  Weight: 77 kg

DRUGS (4)
  1. ALTEPLASE. [Suspect]
     Active Substance: ALTEPLASE
     Route: 042
  2. ALTEPLASE. [Suspect]
     Active Substance: ALTEPLASE
     Indication: ISCHAEMIC STROKE
     Route: 042
     Dates: start: 20190624
  3. ALTEPLASE. [Suspect]
     Active Substance: ALTEPLASE
     Route: 042
  4. FERROUS SULFATE. [Concomitant]
     Active Substance: FERROUS SULFATE
     Indication: PRODUCT USED FOR UNKNOWN INDICATION
     Route: 048
     Dates: start: 20190601

REACTIONS (7)
  - Myocardial infarction [Not Recovered/Not Resolved]
  - Arrhythmia [Not Recovered/Not Resolved]
  - Seizure [Not Recovered/Not Resolved]
  - Fluid overload [Not Recovered/Not Resolved]
  - Cerebral haemorrhage [Unknown]
  - Blood loss anaemia [Recovered/Resolved]
  - Pneumonia aspiration [Recovered/Resolved]

NARRATIVE: CASE EVENT DATE: 20190625
